FAERS Safety Report 16832839 (Version 2)
Quarter: 2019Q4

REPORT INFORMATION
  Report Type: Report from Study
  Country: US (occurrence: US)
  Receive Date: 20190920
  Receipt Date: 20191017
  Transmission Date: 20200122
  Serious: Yes (Other)
  Sender: FDA-Public Use
  Company Number: US-BAYER-2019-169349

PATIENT
  Age: 58 Year
  Sex: Female
  Weight: 86.62 kg

DRUGS (6)
  1. ORENITRAM [Concomitant]
     Active Substance: TREPROSTINIL
     Dosage: UNK
  2. REQUIP [Concomitant]
     Active Substance: ROPINIROLE HYDROCHLORIDE
     Dosage: UNK
  3. ADEMPAS [Suspect]
     Active Substance: RIOCIGUAT
     Indication: PULMONARY ARTERIAL HYPERTENSION
     Dosage: UNK
     Dates: start: 20190624
  4. ADEMPAS [Suspect]
     Active Substance: RIOCIGUAT
     Indication: PULMONARY ARTERIAL HYPERTENSION
     Dosage: 2 MG, TID
     Route: 048
     Dates: start: 2019
  5. MARIJUANA [Concomitant]
     Active Substance: CANNABIS SATIVA SUBSP. INDICA TOP
     Dosage: UNK
  6. OPSUMIT [Concomitant]
     Active Substance: MACITENTAN
     Dosage: UNK

REACTIONS (6)
  - Skin discolouration [Unknown]
  - Unresponsive to stimuli [Recovered/Resolved]
  - Pulse absent [Unknown]
  - Fall [None]
  - Somnolence [None]
  - Cyanosis [Unknown]

NARRATIVE: CASE EVENT DATE: 20190912
